FAERS Safety Report 11865997 (Version 2)
Quarter: 2016Q4

REPORT INFORMATION
  Report Type: Spontaneous
  Country: US (occurrence: US)
  Receive Date: 20151223
  Receipt Date: 20161215
  Transmission Date: 20170206
  Serious: Yes (Other)
  Sender: FDA-Public Use
  Company Number: US-TEVA-620551USA

PATIENT
  Sex: Female

DRUGS (1)
  1. PROVIGIL [Suspect]
     Active Substance: MODAFINIL
     Route: 065

REACTIONS (5)
  - Blindness [Unknown]
  - Fall [Unknown]
  - Somnolence [Not Recovered/Not Resolved]
  - Neck injury [Unknown]
  - Onychoclasis [Unknown]
